FAERS Safety Report 10257003 (Version 1)
Quarter: 2014Q2

REPORT INFORMATION
  Report Type: Spontaneous
  Country: US (occurrence: US)
  Receive Date: 20140625
  Receipt Date: 20140625
  Transmission Date: 20141212
  Serious: No
  Sender: FDA-Public Use
  Company Number: US-BIOGENIDEC-2014BI058900

PATIENT
  Age: 64 Year
  Sex: Female

DRUGS (1)
  1. TYSABRI [Suspect]
     Indication: MULTIPLE SCLEROSIS
     Route: 042
     Dates: start: 20121015

REACTIONS (7)
  - Bone contusion [Recovered/Resolved]
  - Balance disorder [Recovered/Resolved]
  - Fall [Recovered/Resolved]
  - Bronchitis [Recovered/Resolved]
  - Oropharyngeal pain [Recovered/Resolved]
  - Lower respiratory tract infection [Recovered/Resolved]
  - Pharyngitis [Recovered/Resolved]
